FAERS Safety Report 10196539 (Version 1)
Quarter: 2014Q2

REPORT INFORMATION
  Report Type: Spontaneous
  Country: GB (occurrence: None)
  Receive Date: 20140522
  Receipt Date: 20140522
  Transmission Date: 20141212
  Serious: Yes (Disabling, Congenital Anomaly, Other)
  Sender: FDA-Public Use
  Company Number: AUR-APL-2014-05941

PATIENT
  Sex: Female
  Weight: 3.2 kg

DRUGS (10)
  1. LAMOTRIGINE [Suspect]
     Indication: SCHIZOPHRENIA
     Route: 064
  2. MIRTAZAPINE [Suspect]
     Indication: SCHIZOPHRENIA
     Route: 064
  3. ARIPIPRAZOLE [Suspect]
     Indication: SCHIZOPHRENIA
     Route: 064
  4. ZOPICLONE [Suspect]
     Indication: SCHIZOPHRENIA
     Route: 064
  5. PROCYCLIDINE [Suspect]
     Indication: SCHIZOPHRENIA
     Route: 064
  6. CYCLIZINE (CYCLIZINE) [Concomitant]
  7. NICORETTE (NICOTINE) [Concomitant]
  8. VENTOLIN (SALBUTAMOL) [Concomitant]
  9. CLARITHROMYCIN (CLARITHROMYCIN) [Concomitant]
  10. CEFALEXIN (CEFALEXIN) [Concomitant]

REACTIONS (9)
  - Maternal drugs affecting foetus [None]
  - Feeling jittery [None]
  - Feeding disorder neonatal [None]
  - Movement disorder [None]
  - Muscular weakness [None]
  - Caesarean section [None]
  - Developmental hip dysplasia [None]
  - Nervous system disorder [None]
  - Limb asymmetry [None]
